FAERS Safety Report 17080801 (Version 1)
Quarter: 2019Q4

REPORT INFORMATION
  Report Type: Spontaneous
  Country: US (occurrence: US)
  Receive Date: 20191029
  Receipt Date: 20191029
  Transmission Date: 20200122
  Serious: Yes (Hospitalization)
  Sender: FDA-Public Use
  Company Number: None

PATIENT
  Age: 65 Year
  Sex: Male
  Weight: 117.93 kg

DRUGS (1)
  1. ONDANSETRON [Suspect]
     Active Substance: ONDANSETRON
     Indication: NAUSEA
     Dates: start: 20190717, end: 20190719

REACTIONS (2)
  - Electrocardiogram QT prolonged [None]
  - Torsade de pointes [None]

NARRATIVE: CASE EVENT DATE: 20190718
